FAERS Safety Report 26085053 (Version 2)
Quarter: 2025Q4

REPORT INFORMATION
  Report Type: Report from Study
  Country: CA (occurrence: CA)
  Receive Date: 20251125
  Receipt Date: 20251204
  Transmission Date: 20260117
  Serious: Yes (Life-Threatening, Other)
  Sender: ABBVIE
  Company Number: CA-ABBVIE-6150162

PATIENT
  Age: 83 Year
  Sex: Male

DRUGS (96)
  1. VENETOCLAX [Suspect]
     Active Substance: VENETOCLAX
     Indication: Acute myeloid leukaemia
     Dosage: REASON FOR ENDING THE TREATMENT DOSE: DOSE CHANGE/INTERRUPTION
     Route: 048
     Dates: start: 20240607, end: 20240607
  2. VENETOCLAX [Suspect]
     Active Substance: VENETOCLAX
     Indication: Acute myeloid leukaemia
     Dosage: REASON FOR ENDING THE TREATMENT DOSE: DOSE CHANGE/INTERRUPTION
     Route: 048
     Dates: start: 20240608, end: 20240608
  3. VENETOCLAX [Suspect]
     Active Substance: VENETOCLAX
     Indication: Acute myeloid leukaemia
     Dosage: REASON FOR ENDING THE TREATMENT DOSE: END OF CYCLE
     Route: 048
     Dates: start: 20241007, end: 20241013
  4. VENETOCLAX [Suspect]
     Active Substance: VENETOCLAX
     Indication: Acute myeloid leukaemia
     Dosage: REASON FOR ENDING THE TREATMENT DOSE: END OF CYCLE
     Route: 048
     Dates: start: 20241104, end: 20241110
  5. VENETOCLAX [Suspect]
     Active Substance: VENETOCLAX
     Indication: Acute myeloid leukaemia
     Dosage: REASON FOR ENDING THE TREATMENT DOSE: END OF CYCLE
     Route: 048
     Dates: start: 20240827, end: 20240902
  6. VENETOCLAX [Suspect]
     Active Substance: VENETOCLAX
     Indication: Acute myeloid leukaemia
     Dosage: REASON FOR ENDING THE TREATMENT DOSE: END OF CYCLE
     Route: 048
     Dates: start: 20240722, end: 20240728
  7. VENETOCLAX [Suspect]
     Active Substance: VENETOCLAX
     Indication: Acute myeloid leukaemia
     Dosage: END OF CYCLE
     Route: 048
     Dates: start: 20241202, end: 20241208
  8. VENETOCLAX [Suspect]
     Active Substance: VENETOCLAX
     Indication: Acute myeloid leukaemia
     Dosage: REASON FOR ENDING THE TREATMENT DOSE: END OF CYCLE
     Route: 048
     Dates: start: 20240609, end: 20240704
  9. VENETOCLAX [Suspect]
     Active Substance: VENETOCLAX
     Indication: Acute myeloid leukaemia
     Dosage: END OF CYCLE
     Route: 048
     Dates: start: 20250318, end: 20250324
  10. VENETOCLAX [Suspect]
     Active Substance: VENETOCLAX
     Indication: Acute myeloid leukaemia
     Dosage: END OF CYCLE
     Route: 048
     Dates: start: 20250701, end: 20250707
  11. SODIUM CHLORIDE [Concomitant]
     Active Substance: SODIUM CHLORIDE
     Indication: Fluid replacement
     Route: 042
     Dates: start: 20240609, end: 20240609
  12. SODIUM CHLORIDE [Concomitant]
     Active Substance: SODIUM CHLORIDE
     Indication: Fluid replacement
     Dosage: SODIUM CHLORIDE 0.9%
     Route: 042
     Dates: start: 20240607, end: 20240607
  13. SODIUM CHLORIDE [Concomitant]
     Active Substance: SODIUM CHLORIDE
     Indication: Fluid replacement
     Route: 042
     Dates: start: 20240612, end: 20240613
  14. SODIUM CHLORIDE [Concomitant]
     Active Substance: SODIUM CHLORIDE
     Indication: Fluid replacement
     Route: 042
     Dates: start: 20240612, end: 20240612
  15. SODIUM CHLORIDE [Concomitant]
     Active Substance: SODIUM CHLORIDE
     Indication: Fluid replacement
     Route: 042
     Dates: start: 20240625, end: 20240625
  16. NOREPINEPHRINE [Concomitant]
     Active Substance: NOREPINEPHRINE
     Indication: Hypotension
     Dosage: OTHER DOSING FREQUENCY CONTINUOUS
     Route: 042
     Dates: start: 20240609, end: 20240610
  17. NOREPINEPHRINE [Concomitant]
     Active Substance: NOREPINEPHRINE
     Indication: Hypotension
     Dosage: OTHER DOSING FREQUENCY CONTINUOUS
     Route: 042
     Dates: start: 20240607, end: 20240609
  18. FAMOTIDINE [Concomitant]
     Active Substance: FAMOTIDINE
     Indication: Gastrointestinal disorder prophylaxis
     Route: 042
     Dates: start: 20240608, end: 20240608
  19. MICAFUNGIN [Concomitant]
     Active Substance: MICAFUNGIN SODIUM
     Indication: Antifungal prophylaxis
     Route: 042
     Dates: start: 20240608, end: 20240627
  20. ELECTROLYTES NOS [Concomitant]
     Active Substance: ELECTROLYTES NOS
     Indication: Fluid replacement
     Route: 042
     Dates: start: 20240608, end: 20240608
  21. MAGNESIUM SULFATE [Concomitant]
     Active Substance: MAGNESIUM SULFATE
     Indication: Fluid replacement
     Route: 042
     Dates: start: 20240610, end: 20240610
  22. POLYETHYLENE GLYCOL 3350 [Concomitant]
     Active Substance: POLYETHYLENE GLYCOL 3350
     Indication: Constipation
     Route: 048
     Dates: start: 20240612, end: 20240612
  23. POLYETHYLENE GLYCOL 3350 [Concomitant]
     Active Substance: POLYETHYLENE GLYCOL 3350
     Indication: Constipation
     Route: 048
     Dates: start: 20240610, end: 20240610
  24. POLYETHYLENE GLYCOL 3350 [Concomitant]
     Active Substance: POLYETHYLENE GLYCOL 3350
     Indication: Constipation
     Route: 048
     Dates: start: 20240619, end: 20240619
  25. TRAZODONE [Concomitant]
     Active Substance: TRAZODONE HYDROCHLORIDE
     Indication: Insomnia
     Route: 048
     Dates: start: 20240610, end: 20240610
  26. SENNOSIDES [Concomitant]
     Active Substance: SENNOSIDES
     Indication: Constipation
     Route: 048
     Dates: start: 20240614, end: 20240614
  27. SENNOSIDES [Concomitant]
     Active Substance: SENNOSIDES
     Indication: Constipation
     Route: 048
     Dates: start: 20240611, end: 20240611
  28. SENNOSIDES [Concomitant]
     Active Substance: SENNOSIDES
     Indication: Constipation
     Dosage: TIME INTERVAL: AS NECESSARY
     Route: 048
     Dates: start: 20240630
  29. SENNOSIDES [Concomitant]
     Active Substance: SENNOSIDES
     Indication: Constipation
     Route: 048
     Dates: start: 20240626, end: 20240626
  30. BETAMETHASONE VALERATE [Concomitant]
     Active Substance: BETAMETHASONE VALERATE
     Indication: Rash
     Dosage: DOSE 1 U?ROUTE OF ADMINISTRATION- TOPICAL
     Dates: start: 20240612, end: 20240620
  31. ALTEPLASE [Concomitant]
     Active Substance: ALTEPLASE
     Indication: Product used for unknown indication
     Dosage: OTHER ROUTE OF ADMINISTRATION INSTILLATION
     Dates: start: 20240612, end: 20240612
  32. AZACITIDINE [Suspect]
     Active Substance: AZACITIDINE
     Indication: Acute myeloid leukaemia
     Dosage: REASON FOR ENDING THE TREATMENT DOSE: END OF CYCLE
     Route: 065
     Dates: start: 20240607, end: 20240613
  33. AZACITIDINE [Suspect]
     Active Substance: AZACITIDINE
     Indication: Acute myeloid leukaemia
     Dosage: REASON FOR ENDING THE TREATMENT DOSE: END OF CYCLE
     Route: 065
     Dates: start: 20241104, end: 20241110
  34. AZACITIDINE [Suspect]
     Active Substance: AZACITIDINE
     Indication: Acute myeloid leukaemia
     Dosage: END OF CYCLE
     Route: 065
     Dates: start: 20241202, end: 20241208
  35. AZACITIDINE [Suspect]
     Active Substance: AZACITIDINE
     Indication: Acute myeloid leukaemia
     Dosage: REASON FOR ENDING THE TREATMENT DOSE: END OF CYCLE
     Route: 065
     Dates: start: 20241007, end: 20241013
  36. AZACITIDINE [Suspect]
     Active Substance: AZACITIDINE
     Indication: Acute myeloid leukaemia
     Dosage: REASON FOR ENDING THE TREATMENT DOSE: END OF CYCLE
     Route: 065
     Dates: start: 20240722, end: 20240728
  37. AZACITIDINE [Suspect]
     Active Substance: AZACITIDINE
     Indication: Acute myeloid leukaemia
     Dosage: REASON FOR ENDING THE TREATMENT DOSE: END OF CYCLE
     Route: 065
     Dates: start: 20240827, end: 20240902
  38. AZACITIDINE [Suspect]
     Active Substance: AZACITIDINE
     Indication: Acute myeloid leukaemia
     Dosage: END OF CYCLE
     Route: 065
     Dates: start: 20250318, end: 20250324
  39. AZACITIDINE [Suspect]
     Active Substance: AZACITIDINE
     Indication: Acute myeloid leukaemia
     Dosage: END OF CYCLE
     Route: 065
     Dates: start: 20250701, end: 20250707
  40. METOPROLOL [Concomitant]
     Active Substance: METOPROLOL
     Indication: Hypertension
     Route: 048
     Dates: end: 20240707
  41. METOPROLOL [Concomitant]
     Active Substance: METOPROLOL
     Indication: Hypertension
     Route: 048
     Dates: start: 20240611
  42. ASPIRIN [Concomitant]
     Active Substance: ASPIRIN
     Indication: Platelet aggregation abnormal
     Route: 048
     Dates: end: 20240605
  43. CANDESARTAN [Concomitant]
     Active Substance: CANDESARTAN
     Indication: Hypertension
     Route: 048
     Dates: end: 20240611
  44. CANDESARTAN [Concomitant]
     Active Substance: CANDESARTAN
     Indication: Hypertension
     Route: 048
     Dates: start: 20240618, end: 20240627
  45. ALLOPURINOL [Concomitant]
     Active Substance: ALLOPURINOL
     Indication: Gout
     Route: 048
     Dates: end: 20240605
  46. ALLOPURINOL [Concomitant]
     Active Substance: ALLOPURINOL
     Indication: Gout
     Route: 048
     Dates: start: 20240605, end: 20240605
  47. ALLOPURINOL [Concomitant]
     Active Substance: ALLOPURINOL
     Indication: Gout
     Route: 048
     Dates: start: 20240605, end: 20240607
  48. ALLOPURINOL [Concomitant]
     Active Substance: ALLOPURINOL
     Indication: Gout
     Route: 048
     Dates: start: 20240607, end: 20240613
  49. ALLOPURINOL [Concomitant]
     Active Substance: ALLOPURINOL
     Indication: Gout
     Route: 048
     Dates: start: 20240627
  50. TADALAFIL [Concomitant]
     Active Substance: TADALAFIL
     Indication: Erectile dysfunction
     Dosage: TIME INTERVAL: AS NECESSARY
     Route: 048
  51. HYDROXYUREA [Concomitant]
     Active Substance: HYDROXYUREA
     Indication: White blood cell count decreased
     Route: 048
     Dates: start: 20240605, end: 20240607
  52. CALCIUM GLUCONATE [Concomitant]
     Active Substance: CALCIUM GLUCONATE
     Indication: Fluid replacement
     Route: 042
     Dates: start: 20240607, end: 20240607
  53. CALCIUM GLUCONATE [Concomitant]
     Active Substance: CALCIUM GLUCONATE
     Indication: Fluid replacement
     Route: 042
     Dates: start: 20240608, end: 20240608
  54. DEXTROSE [Concomitant]
     Active Substance: DEXTROSE MONOHYDRATE
     Indication: Fluid replacement
     Route: 042
     Dates: start: 20240607, end: 20240608
  55. FUROSEMIDE [Concomitant]
     Active Substance: FUROSEMIDE
     Indication: Oedema
     Route: 042
     Dates: start: 20240607, end: 20240607
  56. FUROSEMIDE [Concomitant]
     Active Substance: FUROSEMIDE
     Indication: Oedema
     Route: 042
     Dates: start: 20240619, end: 20240619
  57. FINASTERIDE [Concomitant]
     Active Substance: FINASTERIDE
     Indication: Benign prostatic hyperplasia
     Route: 048
     Dates: start: 20240624
  58. TAMSULOSIN [Concomitant]
     Active Substance: TAMSULOSIN
     Indication: Benign prostatic hyperplasia
     Route: 048
     Dates: start: 20240624
  59. COVID-19 vaccine mRNA [Concomitant]
     Indication: COVID-19 immunisation
     Dosage: NUMBER OF VACCINATIONS 8
  60. INSULIN NOS [Concomitant]
     Active Substance: INSULIN NOS
     Indication: Blood glucose abnormal
     Dosage: 10 U
     Route: 042
     Dates: start: 20240607, end: 20240608
  61. IOHEXOL [Concomitant]
     Active Substance: IOHEXOL
     Indication: Product used for unknown indication
     Route: 042
     Dates: start: 20240607, end: 20240607
  62. ONDANSETRON [Concomitant]
     Active Substance: ONDANSETRON
     Indication: Nausea
     Route: 048
     Dates: start: 20240607, end: 20240613
  63. ACETAMINOPHEN [Concomitant]
     Active Substance: ACETAMINOPHEN
     Indication: Analgesic therapy
     Route: 048
     Dates: start: 20240607, end: 20240609
  64. MEPERIDINE [Concomitant]
     Active Substance: MEPERIDINE
     Indication: Chills
     Route: 042
     Dates: start: 20240607, end: 20240607
  65. VALACYCLOVIR [Concomitant]
     Active Substance: VALACYCLOVIR HYDROCHLORIDE
     Indication: Antiviral prophylaxis
     Route: 048
     Dates: start: 20240608
  66. VITAMIN K [Concomitant]
     Active Substance: PHYTONADIONE
     Indication: Vitamin supplementation
     Route: 048
     Dates: start: 20240608, end: 20240608
  67. AMIODARONE [Concomitant]
     Active Substance: AMIODARONE
     Indication: Atrial fibrillation
     Route: 042
     Dates: start: 20240609, end: 20240609
  68. AMIODARONE [Concomitant]
     Active Substance: AMIODARONE
     Indication: Atrial fibrillation
     Dosage: OTHER DOSING FREQUENCY CONTINUOUS
     Route: 042
     Dates: start: 20240609, end: 20240610
  69. MIDODRINE [Concomitant]
     Active Substance: MIDODRINE
     Indication: Hypotension
     Route: 048
     Dates: start: 20240609, end: 20240613
  70. MIDODRINE [Concomitant]
     Active Substance: MIDODRINE
     Indication: Hypotension
     Route: 048
     Dates: start: 20240613, end: 20240615
  71. SEROQUEL [Concomitant]
     Active Substance: QUETIAPINE FUMARATE
     Indication: Delirium
     Route: 048
     Dates: start: 20240613, end: 20240613
  72. SEROQUEL [Concomitant]
     Active Substance: QUETIAPINE FUMARATE
     Indication: Delirium
     Route: 048
     Dates: start: 20240614, end: 20240625
  73. SEROQUEL [Concomitant]
     Active Substance: QUETIAPINE FUMARATE
     Indication: Delirium
     Route: 048
     Dates: start: 20240626
  74. SODIUM PHOSPHATE [Concomitant]
     Active Substance: SODIUM PHOSPHATE
     Indication: Fluid replacement
     Route: 042
     Dates: start: 20240613, end: 20240613
  75. DEXTROSE\SODIUM CHLORIDE [Concomitant]
     Active Substance: DEXTROSE\SODIUM CHLORIDE
     Indication: Fluid replacement
     Dosage: DEXTROSE 5% - SODIUM CHLORIDE 0.45%
     Route: 042
     Dates: start: 20240613, end: 20240613
  76. CALAMINE [Concomitant]
     Active Substance: CALAMINE\FERRIC OXIDE RED\ZINC OXIDE
     Indication: Rash
     Dosage: DOSE 1 U?ROUTE OF ADMINISTRATION- TOPICAL
     Dates: start: 20240614, end: 20240620
  77. HYDROCORTISONE [Concomitant]
     Active Substance: HYDROCORTISONE
     Indication: Rash
     Route: 042
     Dates: start: 20240614, end: 20240614
  78. HYDROMORPHONE [Concomitant]
     Active Substance: HYDROMORPHONE
     Indication: Analgesic therapy
     Route: 048
     Dates: start: 20240616, end: 20240616
  79. POTASSIUM CHLORIDE [Concomitant]
     Active Substance: POTASSIUM CHLORIDE
     Indication: Mineral supplementation
     Route: 048
     Dates: start: 20240615, end: 20240615
  80. POTASSIUM CHLORIDE [Concomitant]
     Active Substance: POTASSIUM CHLORIDE
     Indication: Mineral supplementation
     Route: 042
     Dates: start: 20240610, end: 20240610
  81. DIPHENHYDRAMINE [Concomitant]
     Active Substance: DIPHENHYDRAMINE
     Indication: Rash
     Route: 042
     Dates: start: 20240612, end: 20240614
  82. LOPERAMIDE [Concomitant]
     Active Substance: LOPERAMIDE
     Indication: Diarrhoea
     Dosage: TIME INTERVAL: AS NECESSARY
     Route: 048
     Dates: start: 20240612, end: 20240616
  83. LEVOFLOXACIN [Concomitant]
     Active Substance: LEVOFLOXACIN
     Indication: Antibiotic prophylaxis
     Route: 048
     Dates: start: 20240627, end: 20240708
  84. FLUCONAZOLE [Concomitant]
     Active Substance: FLUCONAZOLE
     Indication: Antifungal prophylaxis
     Route: 048
     Dates: start: 20240627, end: 20240708
  85. PREDNISONE [Concomitant]
     Active Substance: PREDNISONE
     Indication: Peripheral swelling
     Route: 048
     Dates: start: 20240714, end: 20240714
  86. PREDNISONE [Concomitant]
     Active Substance: PREDNISONE
     Indication: Peripheral swelling
     Route: 048
     Dates: start: 20240715, end: 20240715
  87. PREDNISONE [Concomitant]
     Active Substance: PREDNISONE
     Indication: Peripheral swelling
     Route: 048
     Dates: start: 20240716, end: 20240716
  88. PREDNISONE [Concomitant]
     Active Substance: PREDNISONE
     Indication: Peripheral swelling
     Route: 048
     Dates: start: 20240717, end: 20240717
  89. PREDNISONE [Concomitant]
     Active Substance: PREDNISONE
     Indication: Peripheral swelling
     Route: 048
     Dates: start: 20240718, end: 20240718
  90. PREDNISONE [Concomitant]
     Active Substance: PREDNISONE
     Indication: Peripheral swelling
     Route: 048
     Dates: start: 20240719, end: 20240719
  91. PREDNISONE [Concomitant]
     Active Substance: PREDNISONE
     Indication: Peripheral swelling
     Route: 048
     Dates: start: 20240720, end: 20240720
  92. PREDNISONE [Concomitant]
     Active Substance: PREDNISONE
     Indication: Peripheral swelling
     Route: 048
     Dates: start: 20240721, end: 20240721
  93. PREDNISONE [Concomitant]
     Active Substance: PREDNISONE
     Indication: Peripheral swelling
     Route: 048
     Dates: start: 20240713, end: 20240713
  94. PREDNISONE [Concomitant]
     Active Substance: PREDNISONE
     Indication: Peripheral swelling
     Route: 048
     Dates: start: 20240708, end: 20240712
  95. CEPHALEXIN [Concomitant]
     Active Substance: CEPHALEXIN
     Indication: Chest wall mass
     Route: 048
     Dates: start: 20240710, end: 20240719
  96. VASOPRESSIN [Concomitant]
     Active Substance: VASOPRESSIN
     Indication: Hypotension
     Dosage: DOSE 20 U
     Route: 042
     Dates: start: 20240608, end: 20240608

REACTIONS (13)
  - Respiratory failure [Recovered/Resolved]
  - Neutropenia [Recovered/Resolved]
  - Febrile neutropenia [Recovered/Resolved]
  - Tumour lysis syndrome [Recovered/Resolved]
  - Neutropenia [Recovered/Resolved]
  - Neutropenia [Recovered/Resolved]
  - Neutropenia [Recovered/Resolved]
  - Neutropenia [Recovered/Resolved]
  - Neutropenia [Recovered/Resolved]
  - Neutropenia [Recovered/Resolved]
  - Neutropenia [Recovered/Resolved]
  - Neutropenia [Recovered/Resolved]
  - Neutropenia [Recovered/Resolved]

NARRATIVE: CASE EVENT DATE: 20240607
